FAERS Safety Report 19900366 (Version 1)
Quarter: 2021Q3

REPORT INFORMATION
  Report Type: Report from Study
  Country: US (occurrence: US)
  Receive Date: 20210929
  Receipt Date: 20210929
  Transmission Date: 20211014
  Serious: Yes (Other)
  Sender: FDA-Public Use
  Company Number: US-JAZZ-2021-US-018146

PATIENT
  Age: 34 Year
  Sex: Female

DRUGS (8)
  1. LORATADINE. [Concomitant]
     Active Substance: LORATADINE
     Indication: HYPERSENSITIVITY
  2. PODOFILOX. [Concomitant]
     Active Substance: PODOFILOX
     Indication: PRODUCT USED FOR UNKNOWN INDICATION
  3. XYREM [Suspect]
     Active Substance: SODIUM OXYBATE
     Dosage: DOSE ADJUSTMENTS
     Route: 048
     Dates: start: 201612, end: 202105
  4. XYREM [Suspect]
     Active Substance: SODIUM OXYBATE
     Dosage: 3.25 GRAM, BID
     Route: 048
     Dates: start: 202105
  5. SIMVASTATIN. [Concomitant]
     Active Substance: SIMVASTATIN
     Indication: BLOOD CHOLESTEROL INCREASED
  6. ARMODAFINIL. [Concomitant]
     Active Substance: ARMODAFINIL
     Indication: POOR QUALITY SLEEP
  7. GABAPENTIN. [Concomitant]
     Active Substance: GABAPENTIN
     Indication: PAIN
  8. XYREM [Suspect]
     Active Substance: SODIUM OXYBATE
     Indication: NARCOLEPSY
     Dosage: 2.25 GRAM, BID
     Route: 048
     Dates: start: 201610, end: 201612

REACTIONS (6)
  - Anxiety [Unknown]
  - Basal cell carcinoma [Unknown]
  - Fibrocystic breast disease [Unknown]
  - Polycystic ovaries [Unknown]
  - Depression [Unknown]
  - Asthma [Unknown]

NARRATIVE: CASE EVENT DATE: 20180122
